FAERS Safety Report 8672891 (Version 4)
Quarter: 2012Q4

REPORT INFORMATION
  Report Type: 
  Country: US (occurrence: US)
  Receive Date: 20120719
  Receipt Date: 20121119
  Transmission Date: 20130627
  Serious: No
  Sender: FDA-Public Use
  Company Number: US-009507513-1207USA006265

PATIENT

DRUGS (1)
  1. MEVACOR TABLET [Suspect]
     Dosage: 20 mg, UNK
     Route: 048
     Dates: start: 2007, end: 2012

REACTIONS (1)
  - Peripheral sensorimotor neuropathy [Not Recovered/Not Resolved]
